FAERS Safety Report 8960489 (Version 1)
Quarter: 2012Q4

REPORT INFORMATION
  Report Type: Spontaneous
  Country: US (occurrence: None)
  Receive Date: 20121203
  Receipt Date: 20121203
  Transmission Date: 20130627
  Serious: Yes (Other)
  Sender: FDA-Public Use
  Company Number: 2012110055

PATIENT
  Age: 68 Year
  Sex: Male
  Weight: 95.26 kg

DRUGS (1)
  1. INSULIN [Suspect]
     Indication: TYPE 1 DIABETES MELLITUS
     Dates: start: 20050101, end: 20121112

REACTIONS (2)
  - Hyperglycaemia [None]
  - Device malfunction [None]
